FAERS Safety Report 7629680-4 (Version None)
Quarter: 2011Q3

REPORT INFORMATION
  Report Type: 
  Country: None (occurrence: None)
  Receive Date: 20110722
  Receipt Date: 20110715
  Transmission Date: 20111222
  Serious: Yes (Hospitalization)
  Sender: FDA-Public Use
  Company Number: FR-JNJFOC-20110707451

PATIENT
  Age: 5 Decade
  Sex: Male

DRUGS (4)
  1. HALDOL [Suspect]
     Route: 048
  2. HALDOL [Suspect]
     Indication: PSYCHOTIC DISORDER
     Route: 048
  3. DIAZEPAM [Suspect]
     Indication: AGGRESSION
     Route: 065
  4. DIAZEPAM [Suspect]
     Route: 065

REACTIONS (3)
  - MYALGIA [None]
  - TRANSAMINASES INCREASED [None]
  - BLOOD CREATINE PHOSPHOKINASE INCREASED [None]
